FAERS Safety Report 13592506 (Version 5)
Quarter: 2017Q3

REPORT INFORMATION
  Report Type: Spontaneous
  Country: FI (occurrence: FI)
  Receive Date: 20170530
  Receipt Date: 20170901
  Transmission Date: 20171127
  Serious: Yes (Other)
  Sender: FDA-Public Use
  Company Number: FI-CELLTRION INC.-2017FI006636

PATIENT

DRUGS (15)
  1. REMSIMA [Suspect]
     Active Substance: INFLIXIMAB
     Dosage: 550 MG INTRAVENOUSLY/NACL 250 ML
     Route: 042
     Dates: start: 20160711, end: 20160711
  2. REMSIMA [Suspect]
     Active Substance: INFLIXIMAB
     Dosage: 550 MG INTRAVENOUSLY/NACL 250 ML
     Route: 042
     Dates: start: 20160808, end: 20160808
  3. LYRICA [Concomitant]
     Active Substance: PREGABALIN
     Dosage: 75 MG, 2+3
  4. AZAMUN [Concomitant]
     Active Substance: AZATHIOPRINE
     Dosage: 225 MG, IN THE EVENINGS
  5. PREDNISOLON                        /00016201/ [Concomitant]
     Active Substance: PREDNISOLONE
     Dosage: 15 MG, DAILY
  6. PANZOR [Concomitant]
     Dosage: 40 MG, 1+1
  7. CALCICHEW D3 FORTE [Concomitant]
     Active Substance: CALCIUM\CHOLECALCIFEROL
     Dosage: UNK, 1X2
  8. LOSATRIX [Concomitant]
     Active Substance: LOSARTAN POTASSIUM
     Dosage: 50 MG, 1X1
  9. HEINIX [Concomitant]
     Active Substance: CETIRIZINE HYDROCHLORIDE
     Indication: SEASONAL ALLERGY
     Dosage: UNK, PRN
  10. PLAVIX [Concomitant]
     Active Substance: CLOPIDOGREL BISULFATE
     Dosage: 75 MG, 1X1
  11. ASACOL [Concomitant]
     Active Substance: MESALAMINE
     Indication: COELIAC DISEASE
     Dosage: 800 MG, 2+2
  12. PARA-TABS [Concomitant]
     Active Substance: ACETAMINOPHEN
     Dosage: 1 G, 1X1-3, AS NEEDED
  13. VITAMIN D                          /00107901/ [Concomitant]
     Active Substance: ERGOCALCIFEROL
     Dosage: 20 ?G, 1X1
  14. REMSIMA [Suspect]
     Active Substance: INFLIXIMAB
     Indication: COLITIS ULCERATIVE
     Dosage: (550 MG,3 SEPARATE INFUSIONS)
     Route: 042
     Dates: start: 20160701, end: 20160701
  15. ESSEX HYDROGEL [Concomitant]
     Dosage: AS NEEDED

REACTIONS (11)
  - Hypoaesthesia [Recovering/Resolving]
  - Erythema nodosum [Recovering/Resolving]
  - Interstitial lung disease [Recovered/Resolved]
  - Sarcoidosis [Recovering/Resolving]
  - Lymphadenopathy mediastinal [Recovering/Resolving]
  - Mononeuropathy multiplex [Recovering/Resolving]
  - Drug specific antibody present [Unknown]
  - Joint effusion [Recovering/Resolving]
  - Cerebral ischaemia [Recovering/Resolving]
  - Immune system disorder [Recovering/Resolving]
  - Paraesthesia [Recovering/Resolving]

NARRATIVE: CASE EVENT DATE: 2016
